FAERS Safety Report 24569229 (Version 1)
Quarter: 2024Q4

REPORT INFORMATION
  Report Type: Spontaneous
  Country: US (occurrence: None)
  Receive Date: 20241030
  Receipt Date: 20241030
  Transmission Date: 20250115
  Serious: No
  Sender: Public
  Company Number: None

PATIENT
  Age: 68 Year
  Sex: Male

DRUGS (6)
  1. SORAFENIB [Suspect]
     Active Substance: SORAFENIB
     Indication: Prostate cancer
     Dosage: FREQUENCY : TWICE A DAY;?
     Route: 048
     Dates: start: 20241011
  2. Atorvastatin 10mg [Concomitant]
  3. Oxycodone acetaminophen 10/325 mg [Concomitant]
  4. prochlorperazine 10mg [Concomitant]
  5. zofran 8 mg [Concomitant]
  6. sildenafil 50mg [Concomitant]

REACTIONS (2)
  - Myalgia [None]
  - Arthralgia [None]

NARRATIVE: CASE EVENT DATE: 20241025
